FAERS Safety Report 6226987-2 (Version None)
Quarter: 2009Q2

REPORT INFORMATION
  Report Type: 
  Country: None (occurrence: None)
  Receive Date: 20090612
  Receipt Date: 20090609
  Transmission Date: 20091009
  Serious: Yes (Hospitalization)
  Sender: FDA-Public Use
  Company Number: GB-BRISTOL-MYERS SQUIBB COMPANY-14654289

PATIENT
  Sex: Female

DRUGS (3)
  1. PACLITAXEL [Suspect]
     Dates: start: 20090514
  2. SODIUM CHLORIDE [Suspect]
     Dosage: 250 ML BAG OF 0.9%
  3. DACARBAZINE [Suspect]
     Dates: start: 20090514

REACTIONS (2)
  - LIVER FUNCTION TEST ABNORMAL [None]
  - MEDICATION ERROR [None]
